FAERS Safety Report 6679389-9 (Version None)
Quarter: 2010Q2

REPORT INFORMATION
  Report Type: 
  Country: None (occurrence: None)
  Receive Date: 20100413
  Receipt Date: 20100401
  Transmission Date: 20101027
  Serious: Yes (Hospitalization)
  Sender: FDA-Public Use
  Company Number: AU-ROCHE-688655

PATIENT
  Sex: Male
  Weight: 62.5 kg

DRUGS (20)
  1. TOCILIZUMAB [Suspect]
     Indication: RHEUMATOID ARTHRITIS
     Dosage: DRUG TEMPORARILY STOPPED ON 02 JULY 2008
     Route: 042
     Dates: start: 20060814, end: 20080519
  2. TOCILIZUMAB [Suspect]
     Route: 042
     Dates: start: 20080811
  3. TOCILIZUMAB [Suspect]
     Dosage: DOSE: 8 MG/KG
     Route: 042
     Dates: start: 20091103
  4. TOCILIZUMAB [Suspect]
     Dosage: DOSE: 8 MG/KG
     Route: 042
     Dates: start: 20091124
  5. TOCILIZUMAB [Suspect]
     Dosage: DOSE: 8 MG/KG
     Route: 042
     Dates: start: 20091215
  6. TOCILIZUMAB [Suspect]
     Dosage: DOSE: 8 MG/KG
     Route: 042
     Dates: start: 20100202, end: 20100301
  7. TOCILIZUMAB [Suspect]
     Dosage: THE PATIENT WAS PREVIOUSLY ENROLLED IN WA18063
     Route: 042
  8. DICLOFENAC SODIUM [Concomitant]
     Route: 048
     Dates: start: 20080612
  9. DICLOFENAC SODIUM [Concomitant]
     Dosage: FREQUENCY REPORTED AS DAILY.
     Route: 048
     Dates: end: 20100305
  10. SULFASALAZINE [Concomitant]
     Dosage: FREQUENCY REPORTED AS DAILY.
     Route: 048
     Dates: start: 20060702
  11. SULFASALAZINE [Concomitant]
     Dosage: FREQUENCY REPORTED AS DAILY.
     Route: 048
     Dates: start: 20070702
  12. SULFASALAZINE [Concomitant]
     Route: 048
  13. METHYLDOPA [Concomitant]
     Dosage: FREQUENCY REPORTED AS DAILY.
     Dates: start: 20100118, end: 20100305
  14. METHYLDOPA [Concomitant]
     Dosage: FREQUENCY REPORTED AS DAILY.
     Dates: start: 20100118, end: 20100305
  15. METHYLDOPA [Concomitant]
     Dosage: FREQUENCY REPORTEDAS DAILY.
     Dates: start: 20100309
  16. ATACAND HCT [Concomitant]
  17. ATACAND HCT [Concomitant]
     Dosage: FREQUENCY REPORTED AS DAILY
  18. OMEPRAZOLE [Concomitant]
  19. ZOLEDRONIC ACID [Concomitant]
     Dosage: TDD REPORTED AS: 4 MGS YRLY.
  20. AMLODIPINE [Concomitant]

REACTIONS (15)
  - BLOOD CULTURE POSITIVE [None]
  - CAVERNOUS SINUS THROMBOSIS [None]
  - CHILLS [None]
  - DECREASED APPETITE [None]
  - DIPLOPIA [None]
  - HEADACHE [None]
  - INTERVERTEBRAL DISCITIS [None]
  - LUMBAR RADICULOPATHY [None]
  - MYCETOMA MYCOTIC [None]
  - OROPHARYNGEAL PAIN [None]
  - PHOTOPHOBIA [None]
  - PLEURAL EFFUSION [None]
  - PLEURAL FIBROSIS [None]
  - SINUSITIS FUNGAL [None]
  - STREPTOCOCCAL INFECTION [None]
